FAERS Safety Report 5159567-0 (Version None)
Quarter: 2006Q4

REPORT INFORMATION
  Report Type: 
  Country: None (occurrence: None)
  Receive Date: 20061120
  Receipt Date: 20061103
  Transmission Date: 20070319
  Serious: Yes (Hospitalization, Other)
  Sender: FDA-Public Use
  Company Number: 2006RR-04404

PATIENT
  Age: 66 Year
  Sex: Female
  Weight: 48 kg

DRUGS (6)
  1. MIDAZOLAM HYDROCHLORIDE [Suspect]
     Indication: ANAESTHESIA
     Dosage: 4 MG, SINGLE, UNK
  2. SEVOFLURANE [Suspect]
     Indication: ANAESTHESIA
     Dosage: 7% IN OXYGEN, RESPIRATORY
     Route: 055
  3. LIDOCAINE [Suspect]
     Indication: ANAESTHESIA
     Dosage: 20 ML, SINGLE, EPIDURAL
     Route: 008
  4. EPINEPHRINE [Suspect]
     Indication: ANAESTHESIA
     Dosage: 1.200000, EPIDURAL
     Route: 008
  5. PROPOFOL [Suspect]
     Indication: ANAESTHESIA
     Dosage: EPIDURAL
     Route: 008
  6. FENTANYL [Suspect]
     Indication: ANAESTHESIA

REACTIONS (4)
  - BREATH SOUNDS ABNORMAL [None]
  - COLLAPSE OF LUNG [None]
  - PROCEDURAL COMPLICATION [None]
  - TRACHEOMALACIA [None]
